FAERS Safety Report 8565147-7 (Version None)
Quarter: 2012Q3

REPORT INFORMATION
  Report Type: 
  Country: None (occurrence: None)
  Receive Date: 20120803
  Receipt Date: 20120730
  Transmission Date: 20120928
  Serious: Yes (Hospitalization, Other)
  Sender: FDA-Public Use
  Company Number: CA-ROCHE-1091247

PATIENT
  Sex: Female
  Weight: 56.75 kg

DRUGS (8)
  1. ACTEMRA [Suspect]
     Indication: RHEUMATOID ARTHRITIS
     Route: 042
     Dates: start: 20120613, end: 20120725
  2. INDAPAMIDE [Concomitant]
  3. ALTACE [Concomitant]
  4. PREDNISONE [Concomitant]
  5. NAPROXEN [Concomitant]
  6. SIROLIMUS [Concomitant]
  7. SIMPONI [Concomitant]
  8. POTASSIUM CHLORIDE [Concomitant]

REACTIONS (3)
  - FLUSHING [None]
  - CHOLELITHIASIS [None]
  - ANAPHYLACTIC REACTION [None]
